FAERS Safety Report 15258781 (Version 4)
Quarter: 2019Q1

REPORT INFORMATION
  Report Type: Report from Study
  Country: FR (occurrence: FR)
  Receive Date: 20180809
  Receipt Date: 20190223
  Transmission Date: 20190417
  Serious: Yes (Hospitalization, Other)
  Sender: FDA-Public Use
  Company Number: FR-ROCHE-2166830

PATIENT

DRUGS (9)
  1. BENDAMUSTINE [Suspect]
     Active Substance: BENDAMUSTINE
     Indication: B-CELL LYMPHOMA
     Route: 042
  2. RITUXIMAB. [Suspect]
     Active Substance: RITUXIMAB
     Indication: B-CELL LYMPHOMA
     Route: 042
  3. CYCLOPHOSPHAMIDE. [Suspect]
     Active Substance: CYCLOPHOSPHAMIDE
     Indication: B-CELL LYMPHOMA
     Route: 042
  4. PREDNISOLONE. [Suspect]
     Active Substance: PREDNISOLONE
     Route: 048
  5. LENALIDOMIDE [Suspect]
     Active Substance: LENALIDOMIDE
     Route: 065
  6. LENALIDOMIDE [Suspect]
     Active Substance: LENALIDOMIDE
     Indication: B-CELL LYMPHOMA
     Route: 065
  7. DOXORUBICIN [Suspect]
     Active Substance: DOXORUBICIN
     Indication: B-CELL LYMPHOMA
     Route: 042
  8. VINCRISTINE [Suspect]
     Active Substance: VINCRISTINE
     Indication: B-CELL LYMPHOMA
     Route: 042
  9. PREDNISOLONE. [Suspect]
     Active Substance: PREDNISOLONE
     Indication: B-CELL LYMPHOMA
     Route: 048

REACTIONS (31)
  - Neutropenia [Unknown]
  - Rash [Unknown]
  - Insomnia [Unknown]
  - Alopecia [Unknown]
  - Embolism venous [Unknown]
  - Embolism arterial [Unknown]
  - Infection [Unknown]
  - Febrile neutropenia [Unknown]
  - Neoplasm malignant [Unknown]
  - Skin reaction [Unknown]
  - Fatigue [Unknown]
  - Bronchitis [Unknown]
  - Headache [Unknown]
  - Leukopenia [Unknown]
  - Cough [Unknown]
  - Infusion related reaction [Unknown]
  - Dyspnoea [Unknown]
  - Diarrhoea [Unknown]
  - Pruritus [Unknown]
  - Myalgia [Unknown]
  - Arthralgia [Unknown]
  - Oedema peripheral [Unknown]
  - Neuropathy peripheral [Unknown]
  - Pyrexia [Unknown]
  - Back pain [Unknown]
  - Tumour flare [Unknown]
  - Thrombocytopenia [Unknown]
  - Asthenia [Unknown]
  - Constipation [Unknown]
  - Abdominal pain [Unknown]
  - Tumour lysis syndrome [Unknown]
